FAERS Safety Report 19186544 (Version 1)
Quarter: 2021Q2

REPORT INFORMATION
  Report Type: Not Available
  Country: US (occurrence: None)
  Receive Date: 20210427
  Receipt Date: 20210427
  Transmission Date: 20210717
  Serious: No
  Sender: FDA-Public Use
  Company Number: US-AKORN-164752

PATIENT
  Sex: Male

DRUGS (1)
  1. AK?FLUOR [Suspect]
     Active Substance: FLUORESCEIN SODIUM

REACTIONS (1)
  - Back pain [Unknown]
